FAERS Safety Report 4464944-7 (Version None)
Quarter: 2004Q4

REPORT INFORMATION
  Report Type: 
  Country: None (occurrence: None)
  Receive Date: 20041004
  Receipt Date: 20040329
  Transmission Date: 20050328
  Serious: No
  Sender: FDA-Public Use
  Company Number: 364929

PATIENT
  Age: 57 Year
  Sex: Male

DRUGS (14)
  1. COREG [Suspect]
     Dosage: 3.125MG TWICE PER DAY
     Route: 048
     Dates: start: 20040320
  2. PATANOL [Concomitant]
  3. NASAREL [Concomitant]
  4. LISINOPRIL [Concomitant]
  5. TRAZODONE HCL [Concomitant]
  6. PLAVIX [Concomitant]
  7. COUMADIN [Concomitant]
  8. NITROGLYCERIN [Concomitant]
     Route: 060
  9. NITROGLYCERIN [Concomitant]
  10. ALDACTONE [Concomitant]
  11. RELAFEN [Concomitant]
  12. ZETIA [Concomitant]
  13. LASIX [Concomitant]
  14. ALDACTONE [Concomitant]

REACTIONS (8)
  - CHEST DISCOMFORT [None]
  - CHEST PAIN [None]
  - COLD SWEAT [None]
  - CONTUSION [None]
  - EPISTAXIS [None]
  - FATIGUE [None]
  - HYPERHIDROSIS [None]
  - RESTLESS LEGS SYNDROME [None]
